FAERS Safety Report 7516850-9 (Version None)
Quarter: 2011Q2

REPORT INFORMATION
  Report Type: 
  Country: None (occurrence: None)
  Receive Date: 20110523
  Receipt Date: 20100510
  Transmission Date: 20111010
  Serious: Yes (Other)
  Sender: FDA-Public Use
  Company Number: ACO_23882_2011

PATIENT
  Age: 57 Year
  Sex: Male

DRUGS (4)
  1. SYNTHROID(ILEVOTHYROXINE SODIJM) [Concomitant]
  2. LEXAPRO [Concomitant]
  3. ZOLPIDEM [Concomitant]
  4. AMPYRA [Suspect]
     Indication: PRODUCT USED FOR UNKNOWN INDICATION
     Dosage: 10 MG, Q 12 HRS, ORAL
     Route: 048
     Dates: start: 20110404, end: 20110407

REACTIONS (5)
  - APHASIA [None]
  - CONVULSION [None]
  - THERAPEUTIC RESPONSE UNEXPECTED [None]
  - AMNESIA [None]
  - MUSCLE RIGIDITY [None]
